FAERS Safety Report 14341348 (Version 1)
Quarter: 2018Q1

REPORT INFORMATION
  Report Type: Spontaneous
  Country: UA (occurrence: UA)
  Receive Date: 20180102
  Receipt Date: 20180102
  Transmission Date: 20180509
  Serious: Yes (Other)
  Sender: FDA-Public Use
  Company Number: UA-TEVA-2017-UA-839367

PATIENT
  Age: 83 Year
  Sex: Female

DRUGS (2)
  1. NEURORUBINE-FORTE LACTAB [Suspect]
     Active Substance: CYANOCOBALAMIN\PYRIDOXINE\THIAMINE
     Indication: ANAEMIA VITAMIN B12 DEFICIENCY
     Dosage: 1 DOSAGE FORMS DAILY; 1 DOSAGE FORM= 1 TABLET
     Route: 048
  2. MALTOFER [Suspect]
     Active Substance: IRON POLYMALTOSE
     Indication: ANAEMIA VITAMIN B12 DEFICIENCY

REACTIONS (1)
  - Angioedema [Unknown]
